FAERS Safety Report 5285695-5 (Version None)
Quarter: 2007Q1

REPORT INFORMATION
  Report Type: 
  Country: None (occurrence: None)
  Receive Date: 20070126
  Receipt Date: 20061114
  Transmission Date: 20070707
  Serious: No
  Sender: FDA-Public Use
  Company Number: 2006-BP-13364BP

PATIENT
  Sex: Male

DRUGS (2)
  1. APTIVUS [Suspect]
     Dosage: (SEE TEXT,TPV/R 250/100MG),PO
     Route: 048
  2. DIFLUCAN [Suspect]

REACTIONS (2)
  - BLOOD BILIRUBIN INCREASED [None]
  - JAUNDICE [None]
